FAERS Safety Report 25387879 (Version 1)
Quarter: 2025Q2

REPORT INFORMATION
  Report Type: Spontaneous
  Country: CN (occurrence: CN)
  Receive Date: 20250603
  Receipt Date: 20250603
  Transmission Date: 20250716
  Serious: Yes (Life-Threatening, Other)
  Sender: BAXTER
  Company Number: None

PATIENT
  Age: 58 Year
  Sex: Female
  Weight: 56.5 kg

DRUGS (6)
  1. CYCLOPHOSPHAMIDE [Suspect]
     Active Substance: CYCLOPHOSPHAMIDE
     Indication: Follicular lymphoma
     Dosage: 1100 MG, QD, D1
     Route: 041
     Dates: start: 20250509, end: 20250509
  2. SODIUM CHLORIDE [Suspect]
     Active Substance: SODIUM CHLORIDE
     Dosage: 100 ML, QD, D1, 0.9% INJECTION, (WITH CYCLOPHOSPHAMIDE)
     Route: 041
     Dates: start: 20250509, end: 20250509
  3. SODIUM CHLORIDE [Suspect]
     Active Substance: SODIUM CHLORIDE
     Dosage: 20 ML, QD, D1, 0.9% INJECTION, (WITH VINCRISTINE SULFATE)
     Route: 041
     Dates: start: 20250509, end: 20250509
  4. DEXTROSE [Suspect]
     Active Substance: DEXTROSE MONOHYDRATE
     Dosage: 100 ML, QD, D1, 5% INJECTION, (WITH PIRARUBICIN)
     Route: 041
     Dates: start: 20250509, end: 20250509
  5. PIRARUBICIN HYDROCHLORIDE [Suspect]
     Active Substance: PIRARUBICIN HYDROCHLORIDE
     Indication: Follicular lymphoma
     Dosage: 75 MG, QD, D1
     Route: 041
     Dates: start: 20250509, end: 20250509
  6. VINCRISTINE SULFATE [Suspect]
     Active Substance: VINCRISTINE SULFATE
     Indication: Follicular lymphoma
     Dosage: 2 MG, QD, D1
     Route: 041
     Dates: start: 20250509, end: 20250509

REACTIONS (1)
  - Myelosuppression [Recovered/Resolved]

NARRATIVE: CASE EVENT DATE: 20250519
